FAERS Safety Report 4476441-3 (Version None)
Quarter: 2004Q4

REPORT INFORMATION
  Report Type: 
  Country: None (occurrence: None)
  Receive Date: 20041012
  Receipt Date: 20040927
  Transmission Date: 20050328
  Serious: Yes (Death)
  Sender: FDA-Public Use
  Company Number: 2004070966

PATIENT
  Age: 46 Year

DRUGS (2)
  1. DOXEPIN HCL [Suspect]
     Indication: ILL-DEFINED DISORDER
  2. CLONAZEPAM [Suspect]
     Indication: ILL-DEFINED DISORDER

REACTIONS (1)
  - MULTIPLE DRUG OVERDOSE INTENTIONAL [None]
